FAERS Safety Report 5825408-9 (Version None)
Quarter: 2008Q3

REPORT INFORMATION
  Report Type: 
  Country: None (occurrence: None)
  Receive Date: 20080725
  Receipt Date: 20080725
  Transmission Date: 20090109
  Serious: Yes (Hospitalization)
  Sender: FDA-Public Use
  Company Number: None

PATIENT
  Age: 45 Year
  Sex: Female

DRUGS (2)
  1. VARENICLINE 0.5 PFIZER [Suspect]
     Indication: SMOKING CESSATION THERAPY
     Dosage: 0.5 PO
     Route: 048
     Dates: start: 20080129, end: 20080204
  2. VARENICLINE 1 PFIZER [Suspect]
     Dosage: 1 PO
     Route: 048
     Dates: start: 20080204, end: 20080206

REACTIONS (3)
  - ANXIETY [None]
  - PSYCHOTIC DISORDER [None]
  - THOUGHT BROADCASTING [None]
